FAERS Safety Report 18320000 (Version 1)
Quarter: 2020Q3

REPORT INFORMATION
  Report Type: Spontaneous
  Country: BR (occurrence: BR)
  Receive Date: 20200928
  Receipt Date: 20200928
  Transmission Date: 20201103
  Serious: Yes (Other)
  Sender: FDA-Public Use
  Company Number: BR-GLAXOSMITHKLINE-BR2020AMR187747

PATIENT
  Sex: Female

DRUGS (1)
  1. CLINDOXYL [Suspect]
     Active Substance: BENZOYL PEROXIDE\CLINDAMYCIN PHOSPHATE
     Indication: ACNE
     Dosage: UNK
     Dates: start: 20200908

REACTIONS (7)
  - Pruritus [Unknown]
  - Wound [Unknown]
  - Swelling [Unknown]
  - Skin disorder [Unknown]
  - Oedema [Unknown]
  - Erythema [Unknown]
  - Drug hypersensitivity [Unknown]
